FAERS Safety Report 11734999 (Version 1)
Quarter: 2015Q4

REPORT INFORMATION
  Report Type: Spontaneous
  Country: HU (occurrence: HU)
  Receive Date: 20151113
  Receipt Date: 20151113
  Transmission Date: 20160304
  Serious: Yes (Hospitalization, Other)
  Sender: FDA-Public Use
  Company Number: HU-PFIZER INC-2013283197

PATIENT
  Age: 63 Year
  Sex: Male

DRUGS (1)
  1. SUTENT [Suspect]
     Active Substance: SUNITINIB MALATE
     Indication: CLEAR CELL RENAL CELL CARCINOMA
     Dosage: 50 MG DAILY, CYCLIC (SCHEME: 2 WEEKS TAKING, 1 WEEK BREAK)
     Route: 048
     Dates: start: 20130131

REACTIONS (4)
  - Hemiparesis [Recovered/Resolved]
  - Vascular encephalopathy [Recovered/Resolved]
  - Blood thyroid stimulating hormone increased [Unknown]
  - Renal impairment [Unknown]
